FAERS Safety Report 13603965 (Version 1)
Quarter: 2017Q2

REPORT INFORMATION
  Report Type: Report from Study
  Country: NL (occurrence: NL)
  Receive Date: 20170602
  Receipt Date: 20170602
  Transmission Date: 20170830
  Serious: Yes (Other)
  Sender: FDA-Public Use
  Company Number: NL-ROCHE-1114492

PATIENT
  Age: 39 Year
  Sex: Male
  Weight: 95 kg

DRUGS (9)
  1. EUTHYROX [Concomitant]
     Active Substance: LEVOTHYROXINE SODIUM
     Route: 065
     Dates: start: 20120905
  2. VEMURAFENIB [Suspect]
     Active Substance: VEMURAFENIB
     Route: 048
     Dates: start: 20120709, end: 20120729
  3. VEMURAFENIB [Suspect]
     Active Substance: VEMURAFENIB
     Dosage: LAST DOSE ON 15/NOV/2012
     Route: 048
     Dates: start: 20120730
  4. PARACETAMOL [Concomitant]
     Active Substance: ACETAMINOPHEN
     Route: 065
     Dates: start: 20120617, end: 20120806
  5. VEMURAFENIB [Suspect]
     Active Substance: VEMURAFENIB
     Indication: METASTATIC MALIGNANT MELANOMA
     Dosage: LAST DOSE ON 10/AUG/2012
     Route: 048
     Dates: start: 20120709
  6. THYRAX [Concomitant]
     Active Substance: LEVOTHYROXINE
     Route: 065
     Dates: start: 20120629
  7. MOVICOLON [Concomitant]
     Active Substance: POLYETHYLENE GLYCOL 3350\POTASSIUM CHLORIDE\SODIUM BICARBONATE\SODIUM CHLORIDE
     Route: 065
     Dates: start: 20120617, end: 20120905
  8. OXYCONTIN [Concomitant]
     Active Substance: OXYCODONE HYDROCHLORIDE
     Route: 065
     Dates: start: 20120718
  9. THYRAX [Concomitant]
     Active Substance: LEVOTHYROXINE
     Route: 065
     Dates: start: 20120905

REACTIONS (2)
  - Malignant melanoma [Recovered/Resolved]
  - Squamous cell carcinoma of skin [Recovered/Resolved]

NARRATIVE: CASE EVENT DATE: 20120810
